FAERS Safety Report 20884041 (Version 13)
Quarter: 2024Q1

REPORT INFORMATION
  Report Type: Spontaneous
  Country: US (occurrence: US)
  Receive Date: 20220527
  Receipt Date: 20240314
  Transmission Date: 20240410
  Serious: No
  Sender: FDA-Public Use
  Company Number: US-PFIZER INC-202200766045

PATIENT
  Age: 68 Year
  Sex: Female
  Weight: 78.912 kg

DRUGS (1)
  1. XELJANZ [Suspect]
     Active Substance: TOFACITINIB CITRATE
     Dosage: 5 MG, 2X/DAY

REACTIONS (5)
  - Illness [Recovering/Resolving]
  - Alopecia [Unknown]
  - Tremor [Unknown]
  - Nervousness [Unknown]
  - Nasal oedema [Not Recovered/Not Resolved]
